FAERS Safety Report 23234679 (Version 2)
Quarter: 2023Q4

REPORT INFORMATION
  Report Type: Spontaneous
  Country: PT (occurrence: PT)
  Receive Date: 20231128
  Receipt Date: 20231214
  Transmission Date: 20240110
  Serious: Yes (Other)
  Sender: FDA-Public Use
  Company Number: PT-EXELTIS PHARMACEUTICAL HOLDING, S.L.-2311PT08202

PATIENT
  Sex: Female

DRUGS (2)
  1. DROSPIRENONE [Suspect]
     Active Substance: DROSPIRENONE
     Indication: Intermenstrual bleeding
  2. DROSPIRENONE [Suspect]
     Active Substance: DROSPIRENONE
     Indication: Dysmenorrhoea

REACTIONS (2)
  - Transient ischaemic attack [Recovered/Resolved]
  - Off label use [Unknown]
